FAERS Safety Report 8263408-2 (Version None)
Quarter: 2012Q1

REPORT INFORMATION
  Report Type: 
  Country: None (occurrence: None)
  Receive Date: 20120327
  Receipt Date: 20110104
  Transmission Date: 20120608
  Serious: Yes (Other)
  Sender: FDA-Public Use
  Company Number: PHHY2010US24622

PATIENT
  Sex: Female

DRUGS (2)
  1. GLEEVEC [Suspect]
     Indication: SOFT TISSUE NEOPLASM
     Dosage: 400 MG, DAILY, ORAL
     Route: 048
     Dates: start: 20100226
  2. GLEEVEC [Suspect]
     Indication: SOFT TISSUE NEOPLASM
     Dosage: 400 MG, DAILY, ORAL
     Route: 048
     Dates: start: 20100521, end: 20101020

REACTIONS (3)
  - NEOPLASM MALIGNANT [None]
  - NAUSEA [None]
  - DRUG INEFFECTIVE [None]
